FAERS Safety Report 11226226 (Version 1)
Quarter: 2015Q2

REPORT INFORMATION
  Report Type: Spontaneous
  Country: IT (occurrence: IT)
  Receive Date: 20150629
  Receipt Date: 20150629
  Transmission Date: 20150821
  Serious: Yes (Hospitalization)
  Sender: FDA-Public Use
  Company Number: IT-MYLANLABS-2015M1021261

PATIENT

DRUGS (3)
  1. METFORMIN [Suspect]
     Active Substance: METFORMIN HYDROCHLORIDE
     Indication: PRODUCT USED FOR UNKNOWN INDICATION
     Dosage: 3000MG/DAY, SUSPENDED 3 DAYS BEFORE THE OPERATION AND AGAIN RESUMED 5 DAYS AFTER PROCEDURE
     Route: 065
  2. HYDROCHLOROTHIAZIDE/IRBESARTAN [Suspect]
     Active Substance: HYDROCHLOROTHIAZIDE\IRBESARTAN
     Indication: PRODUCT USED FOR UNKNOWN INDICATION
     Dosage: 150/12.5MG/DAY
     Route: 065
  3. TAMSULOSIN [Suspect]
     Active Substance: TAMSULOSIN
     Indication: PRODUCT USED FOR UNKNOWN INDICATION
     Dosage: 0.4MG/DAY
     Route: 065

REACTIONS (5)
  - Lactic acidosis [Recovered/Resolved]
  - Haemodialysis [None]
  - Blood pressure decreased [None]
  - Acute kidney injury [Recovering/Resolving]
  - Abdominal pain [None]
